FAERS Safety Report 8086438-2 (Version None)
Quarter: 2012Q1

REPORT INFORMATION
  Report Type: 
  Country: None (occurrence: None)
  Receive Date: 20120128
  Receipt Date: 20110511
  Transmission Date: 20120608
  Serious: No
  Sender: FDA-Public Use
  Company Number: US-ABBOTT-11P-163-0724925-00

PATIENT
  Age: 35 Year
  Sex: Female

DRUGS (2)
  1. DEPO-PROVERA [Concomitant]
     Indication: PRODUCT USED FOR UNKNOWN INDICATION
     Dates: start: 20110201
  2. HUMIRA [Suspect]
     Indication: PSORIASIS
     Dates: start: 20110201

REACTIONS (6)
  - RASH [None]
  - MIGRAINE [None]
  - PAIN IN EXTREMITY [None]
  - VOMITING [None]
  - PARAPSORIASIS [None]
  - NAUSEA [None]
